FAERS Safety Report 8840311 (Version 2)
Quarter: 2012Q4

REPORT INFORMATION
  Report Type: 
  Country: US (occurrence: US)
  Receive Date: 20121015
  Receipt Date: 20121019
  Transmission Date: 20130627
  Serious: Yes (Hospitalization, Other)
  Sender: FDA-Public Use
  Company Number: US-CELGENEUS-163-21880-12090981

PATIENT
  Sex: Male

DRUGS (2)
  1. REVLIMID [Suspect]
     Indication: MULTIPLE MYELOMA
     Dosage: 5 Milligram
     Route: 065
     Dates: start: 201109
  2. REVLIMID [Suspect]
     Dosage: 5 Milligram
     Route: 065
     Dates: start: 201209

REACTIONS (13)
  - Abasia [Unknown]
  - Activities of daily living impaired [Unknown]
  - Oedema peripheral [Unknown]
  - Haemoglobin decreased [Unknown]
  - White blood cell count decreased [Unknown]
  - Abnormal sensation in eye [Unknown]
  - Rash pustular [Unknown]
  - Rash [Unknown]
  - Skin irritation [Unknown]
  - Pruritus [Unknown]
  - Rash macular [Unknown]
  - Infection [Unknown]
  - Epigastric discomfort [Unknown]
